FAERS Safety Report 7537007-1 (Version None)
Quarter: 2011Q2

REPORT INFORMATION
  Report Type: 
  Country: None (occurrence: None)
  Receive Date: 20110608
  Receipt Date: 20110608
  Transmission Date: 20111010
  Serious: Yes (Hospitalization)
  Sender: FDA-Public Use
  Company Number: None

PATIENT
  Age: 67 Year
  Sex: Male
  Weight: 82 kg

DRUGS (1)
  1. LISINOPRIL AND HYDROCHLOROTHIAZIDE [Suspect]
     Indication: HYPERTENSION
     Dosage: TAB BID PO
     Route: 048
     Dates: start: 20100928, end: 20110405

REACTIONS (5)
  - SWELLING FACE [None]
  - DYSPHAGIA [None]
  - ANGIOEDEMA [None]
  - COUGH [None]
  - SWOLLEN TONGUE [None]
